FAERS Safety Report 20412261 (Version 1)
Quarter: 2022Q1

REPORT INFORMATION
  Report Type: Spontaneous
  Country: US (occurrence: US)
  Receive Date: 20220201
  Receipt Date: 20220201
  Transmission Date: 20220423
  Serious: Yes (Death)
  Sender: FDA-Public Use
  Company Number: US-PFIZER INC-202101639038

PATIENT
  Age: 60 Year
  Sex: Male

DRUGS (1)
  1. CAMPTOSAR [Suspect]
     Active Substance: IRINOTECAN HYDROCHLORIDE
     Indication: Lung neoplasm malignant
     Dosage: DAY 1, DAY 8, DAY 15 EVERY 28 DAYS
     Dates: start: 20211111

REACTIONS (2)
  - Neoplasm progression [Fatal]
  - Off label use [Unknown]
